FAERS Safety Report 7749948-0 (Version None)
Quarter: 2011Q3

REPORT INFORMATION
  Report Type: 
  Country: None (occurrence: None)
  Receive Date: 20110912
  Receipt Date: 20110826
  Transmission Date: 20111222
  Serious: Yes (Life-Threatening, Hospitalization)
  Sender: FDA-Public Use
  Company Number: DSA_47484_2011

PATIENT
  Age: 26 Year
  Sex: Female

DRUGS (2)
  1. LORAZEPAM [Suspect]
     Indication: ANXIETY
     Dosage: 1 MG  (1 MG 1X INTRAVENOUS (NOT OTHERWISE SPECIFIED))
     Route: 042
  2. BUPRENORPHINE HCL AND NALOXONE HCL [Suspect]
     Indication: DRUG DEPENDENCE
     Dosage: (DF)

REACTIONS (9)
  - DYSPNOEA [None]
  - LOBAR PNEUMONIA [None]
  - COUGH [None]
  - UPPER RESPIRATORY TRACT INFECTION [None]
  - RESPIRATORY DEPRESSION [None]
  - CHEST DISCOMFORT [None]
  - PYREXIA [None]
  - TACHYCARDIA [None]
  - TACHYPNOEA [None]
